FAERS Safety Report 6678241-2 (Version None)
Quarter: 2010Q2

REPORT INFORMATION
  Report Type: 
  Country: None (occurrence: None)
  Receive Date: 20100408
  Receipt Date: 20100408
  Transmission Date: 20101027
  Serious: Yes (Other)
  Sender: FDA-Public Use
  Company Number: None

PATIENT
  Age: 23 Year
  Sex: Female
  Weight: 61.2356 kg

DRUGS (1)
  1. ACETYLCYSTEINE [Suspect]
     Indication: DRUG TOXICITY
     Dosage: 43 MLS ONE TIME PO
     Route: 048
     Dates: start: 20100328, end: 20100328

REACTIONS (3)
  - DRUG HYPERSENSITIVITY [None]
  - LOWER GASTROINTESTINAL HAEMORRHAGE [None]
  - PRURITUS [None]
